FAERS Safety Report 9898895 (Version 1)
Quarter: 2014Q1

REPORT INFORMATION
  Report Type: Spontaneous
  Country: US (occurrence: US)
  Receive Date: 20140214
  Receipt Date: 20140214
  Transmission Date: 20141002
  Serious: Yes (Hospitalization)
  Sender: FDA-Public Use
  Company Number: US-GLAXOSMITHKLINE-A0802635A

PATIENT
  Age: 60 Year
  Sex: Female
  Weight: 91.4 kg

DRUGS (1)
  1. AVANDIA [Suspect]
     Indication: DIABETES MELLITUS
     Route: 048

REACTIONS (4)
  - Cardiac disorder [Unknown]
  - Cardiovascular disorder [Unknown]
  - Acute myocardial infarction [Unknown]
  - Acute coronary syndrome [Unknown]
